FAERS Safety Report 7458142-2 (Version None)
Quarter: 2011Q2

REPORT INFORMATION
  Report Type: 
  Country: None (occurrence: None)
  Receive Date: 20110504
  Receipt Date: 20110426
  Transmission Date: 20111010
  Serious: Yes (Other)
  Sender: FDA-Public Use
  Company Number: PHHO2011FR00975

PATIENT
  Sex: Male
  Weight: 86 kg

DRUGS (10)
  1. MODAMIDE [Concomitant]
     Indication: HYPERTENSION
  2. LOCACID [Concomitant]
     Indication: RASH ERYTHEMATOUS
  3. VOLTAREN [Concomitant]
  4. EVEROLIMUS [Suspect]
     Dosage: CODE NOT BROKEN
     Dates: start: 20110121
  5. CORGARD [Concomitant]
  6. TOPALGIC [Concomitant]
     Indication: BONE PAIN
  7. EVEROLIMUS [Suspect]
     Indication: HEPATIC NEOPLASM MALIGNANT
     Dosage: CODE NOT BROKEN
     Route: 048
     Dates: start: 20101209, end: 20110112
  8. MOPRAL [Concomitant]
     Indication: GASTROOESOPHAGEAL REFLUX DISEASE
  9. LERCAN [Concomitant]
     Indication: HYPERTENSION
  10. PEVARYL [Concomitant]

REACTIONS (3)
  - CONCOMITANT DISEASE PROGRESSION [None]
  - HYPERSPLENISM [None]
  - NEUTROPENIA [None]
